FAERS Safety Report 11158203 (Version 2)
Quarter: 2015Q2

REPORT INFORMATION
  Report Type: Report from Study
  Country: CA (occurrence: CA)
  Receive Date: 20150603
  Receipt Date: 20150613
  Transmission Date: 20150821
  Serious: Yes (Hospitalization)
  Sender: FDA-Public Use
  Company Number: CA-BIOGENIDEC-2015BI072937

PATIENT
  Age: 52 Year
  Sex: Male

DRUGS (1)
  1. AVONEX [Suspect]
     Active Substance: INTERFERON BETA-1A
     Indication: RELAPSING-REMITTING MULTIPLE SCLEROSIS
     Route: 030
     Dates: start: 20090901, end: 20150515

REACTIONS (8)
  - Nasopharyngitis [Unknown]
  - Malaise [Unknown]
  - Adverse drug reaction [Recovered/Resolved]
  - Rash [Unknown]
  - Immune thrombocytopenic purpura [Recovered/Resolved]
  - Eosinophilia [Recovered/Resolved]
  - Abdominal discomfort [Unknown]
  - Influenza like illness [Unknown]

NARRATIVE: CASE EVENT DATE: 201503
